FAERS Safety Report 25825488 (Version 1)
Quarter: 2025Q3

REPORT INFORMATION
  Report Type: Spontaneous
  Country: NZ (occurrence: NZ)
  Receive Date: 20250919
  Receipt Date: 20250919
  Transmission Date: 20251021
  Serious: No
  Sender: PFIZER
  Company Number: NZ-PFIZER INC-202500185399

PATIENT
  Sex: Female

DRUGS (1)
  1. ENBREL [Suspect]
     Active Substance: ETANERCEPT

REACTIONS (3)
  - Device mechanical issue [Unknown]
  - Drug dose omission by device [Unknown]
  - Device leakage [Unknown]
